FAERS Safety Report 4747783-9 (Version None)
Quarter: 2005Q3

REPORT INFORMATION
  Report Type: 
  Country: None (occurrence: None)
  Receive Date: 20050816
  Receipt Date: 20050804
  Transmission Date: 20060218
  Serious: Yes (Hospitalization)
  Sender: FDA-Public Use
  Company Number: 2005073920

PATIENT
  Sex: Female

DRUGS (3)
  1. BEXTRA [Suspect]
     Indication: ARTHRITIS
     Dosage: 40 MG (40 MG, 1 IN 1 D), ORAL
     Route: 048
     Dates: start: 20040401, end: 20040501
  2. BEXTRA IV/IM (PARECOXIB) [Suspect]
     Indication: ARTHRITIS
     Dosage: 40 MG (40 MG, 1 IN 1 D)
     Dates: start: 20040401, end: 20040501
  3. DIPROSPAN (BETAMETHASONE DIPROPIONATE, BETAMETHASONE SODIUM PHOSPHATE) [Concomitant]

REACTIONS (6)
  - ABDOMINAL PAIN [None]
  - ABDOMINAL PAIN UPPER [None]
  - CHILLS [None]
  - DIVERTICULITIS [None]
  - HAEMORRHAGE [None]
  - THERAPY NON-RESPONDER [None]
